FAERS Safety Report 21786975 (Version 1)
Quarter: 2022Q4

REPORT INFORMATION
  Report Type: Report from Study
  Country: US (occurrence: US)
  Receive Date: 20221228
  Receipt Date: 20221228
  Transmission Date: 20230112
  Serious: No
  Sender: FDA-Public Use
  Company Number: US-ABBVIE-22K-163-4477785-00

PATIENT
  Age: 59 Year
  Sex: Female

DRUGS (5)
  1. RINVOQ [Suspect]
     Active Substance: UPADACITINIB
     Indication: Rheumatoid arthritis
     Route: 048
     Dates: start: 202204, end: 2022
  2. RINVOQ [Suspect]
     Active Substance: UPADACITINIB
     Indication: Rheumatoid arthritis
     Route: 048
     Dates: start: 20220824, end: 2022
  3. RINVOQ [Suspect]
     Active Substance: UPADACITINIB
     Indication: Rheumatoid arthritis
     Route: 048
     Dates: start: 202209, end: 2022
  4. RINVOQ [Suspect]
     Active Substance: UPADACITINIB
     Indication: Rheumatoid arthritis
     Route: 048
     Dates: start: 202210, end: 2022
  5. RINVOQ [Suspect]
     Active Substance: UPADACITINIB
     Indication: Rheumatoid arthritis
     Route: 048
     Dates: start: 20221118

REACTIONS (22)
  - COVID-19 [Not Recovered/Not Resolved]
  - Musculoskeletal stiffness [Unknown]
  - Sinusitis [Unknown]
  - Middle ear effusion [Unknown]
  - Swollen tear duct [Unknown]
  - Grip strength decreased [Unknown]
  - Gait disturbance [Unknown]
  - Therapeutic product effect decreased [Unknown]
  - Stomatitis [Unknown]
  - Loss of personal independence in daily activities [Unknown]
  - Dry mouth [Unknown]
  - Rheumatoid arthritis [Not Recovered/Not Resolved]
  - Pain in extremity [Unknown]
  - Arthralgia [Unknown]
  - Limb crushing injury [Unknown]
  - Fatigue [Unknown]
  - Mouth ulceration [Unknown]
  - Oral candidiasis [Unknown]
  - Balance disorder [Unknown]
  - Mobility decreased [Unknown]
  - Joint range of motion decreased [Unknown]
  - Tenderness [Unknown]

NARRATIVE: CASE EVENT DATE: 20220601
